FAERS Safety Report 5765857-0 (Version None)
Quarter: 2008Q2

REPORT INFORMATION
  Report Type: 
  Country: None (occurrence: None)
  Receive Date: 20080605
  Receipt Date: 20080520
  Transmission Date: 20081010
  Serious: Yes (Hospitalization)
  Sender: FDA-Public Use
  Company Number: DSA_31897_2008

PATIENT
  Sex: Male

DRUGS (4)
  1. LORAZEPAM [Suspect]
     Dosage: 10 MG 1 X NOT PRESCRIBED AMOUNT, ORAL
     Route: 048
     Dates: start: 20080519, end: 20080519
  2. ETHANOL (ALCOHOL - ETHANOL) [Suspect]
     Dosage: 2 BOTTLES OF BEER, ORAL
     Route: 048
     Dates: start: 20080519, end: 20080519
  3. DOXEPIN HCL [Suspect]
     Dosage: 2 DF 1 X NOT THE PRESCRIBED AMOUNT, ORAL
     Route: 048
     Dates: start: 20080519, end: 20080519
  4. METHADONE HCL [Suspect]
     Dosage: 130 MG 1 X NOT THE PRESCRIBED AMOUNT, ORAL
     Route: 048
     Dates: start: 20080519, end: 20080519

REACTIONS (3)
  - DRUG ABUSE [None]
  - MULTIPLE DRUG OVERDOSE INTENTIONAL [None]
  - TACHYCARDIA [None]
